FAERS Safety Report 16089901 (Version 2)
Quarter: 2019Q1

REPORT INFORMATION
  Report Type: Spontaneous
  Country: US (occurrence: US)
  Receive Date: 20190319
  Receipt Date: 20190326
  Transmission Date: 20190418
  Serious: No
  Sender: FDA-Public Use
  Company Number: US-SA-2019SA071445

PATIENT
  Age: 69 Year
  Sex: Female

DRUGS (1)
  1. TOUJEO [Suspect]
     Active Substance: INSULIN GLARGINE
     Indication: TYPE 2 DIABETES MELLITUS
     Dosage: 50-60 UNITS ONCE DAILY BASED ON HER BLOOD SUGARS
     Route: 065
     Dates: start: 201803

REACTIONS (4)
  - Hypertension [Unknown]
  - Weight increased [Unknown]
  - Blood glucose abnormal [Unknown]
  - Insomnia [Unknown]
